FAERS Safety Report 6520039-X (Version None)
Quarter: 2009Q4

REPORT INFORMATION
  Report Type: 
  Country: None (occurrence: None)
  Receive Date: 20091229
  Receipt Date: 20091215
  Transmission Date: 20100525
  Serious: Yes (Other)
  Sender: FDA-Public Use
  Company Number: PHEH2009US17998

PATIENT
  Sex: Male

DRUGS (1)
  1. ZOMETA [Suspect]

REACTIONS (7)
  - ANHEDONIA [None]
  - DEFORMITY [None]
  - DISABILITY [None]
  - EMOTIONAL DISTRESS [None]
  - IMPAIRED WORK ABILITY [None]
  - OSTEONECROSIS [None]
  - PAIN [None]
